FAERS Safety Report 14154211 (Version 1)
Quarter: 2017Q4

REPORT INFORMATION
  Report Type: Spontaneous
  Country: US (occurrence: US)
  Receive Date: 20171102
  Receipt Date: 20171102
  Transmission Date: 20180321
  Serious: Yes (Hospitalization, Other)
  Sender: FDA-Public Use
  Company Number: US-BRISTOL-MYERS SQUIBB COMPANY-BMS-2017-098573

PATIENT
  Age: 90 Year
  Sex: Female

DRUGS (1)
  1. ELIQUIS [Suspect]
     Active Substance: APIXABAN
     Indication: CEREBROVASCULAR ACCIDENT PROPHYLAXIS
     Dosage: 5 MG, BID
     Route: 048
     Dates: end: 20160309

REACTIONS (6)
  - Fall [Unknown]
  - Haemorrhage [Unknown]
  - Femur fracture [Unknown]
  - Facial pain [Unknown]
  - Iron deficiency anaemia [Unknown]
  - Head injury [Unknown]

NARRATIVE: CASE EVENT DATE: 20170309
